FAERS Safety Report 13378115 (Version 2)
Quarter: 2017Q3

REPORT INFORMATION
  Report Type: Report from Study
  Country: US (occurrence: US)
  Receive Date: 20170328
  Receipt Date: 20170919
  Transmission Date: 20171127
  Serious: Yes (Hospitalization)
  Sender: FDA-Public Use
  Company Number: US-VERTEX PHARMACEUTICALS-2017-001650

PATIENT
  Age: 10 Year
  Sex: Female

DRUGS (29)
  1. LEXAPRO [Interacting]
     Active Substance: ESCITALOPRAM OXALATE
     Dosage: 2 DF (10MG TOTAL), QD
     Route: 048
     Dates: start: 201612
  2. CREON [Concomitant]
     Active Substance: PANCRELIPASE AMYLASE\PANCRELIPASE LIPASE\PANCRELIPASE PROTEASE
     Dosage: 5 WITH MEALS AND 3 WITH SNACKS
  3. PROAIR HFA [Concomitant]
     Active Substance: ALBUTEROL SULFATE
     Indication: WHEEZING
  4. PREVACID [Concomitant]
     Active Substance: LANSOPRAZOLE
     Dosage: 2 DF, QD
     Route: 048
     Dates: start: 20170913
  5. INSULIN [Concomitant]
     Active Substance: INSULIN NOS
     Dosage: 1 SYRINGE INTO THE SKIN PRN (6-8 TIMES DAILY)
     Route: 058
  6. SODIUM CHLORIDE. [Concomitant]
     Active Substance: SODIUM CHLORIDE
     Dosage: 4 ML, BID
     Route: 055
  7. PEPTAMEN [Concomitant]
     Dosage: 2 CANS, QD BY G TUBE ROUTE
  8. FLOVENT HFA [Concomitant]
     Active Substance: FLUTICASONE PROPIONATE
     Dosage: 2 DF INHALED (ORAL) W/SPACER, BID
     Route: 055
  9. VITAMIN D3 [Concomitant]
     Active Substance: CHOLECALCIFEROL
     Dosage: 2 DF, QD
     Route: 048
  10. PEDIASURE [Concomitant]
     Active Substance: VITAMINS
     Dosage: 3 CANS TID. 3 CANS DURING THE DAY
     Route: 048
  11. CREON [Concomitant]
     Active Substance: PANCRELIPASE AMYLASE\PANCRELIPASE LIPASE\PANCRELIPASE PROTEASE
     Dosage: 5 DF, AT BEDTIME. PRIOR TO OVERNIGHT FEED STARTING 17-JUN-2017
     Route: 048
  12. GUAR GUM [Concomitant]
     Active Substance: GUAR GUM
     Dosage: 2 PACKETS ADDED TO DAYTIME FEEDS OR VIA G TUBE
     Route: 048
  13. PROAIR HFA [Concomitant]
     Active Substance: ALBUTEROL SULFATE
     Indication: COUGH
  14. ORKAMBI [Suspect]
     Active Substance: IVACAFTOR\LUMACAFTOR
     Indication: CYSTIC FIBROSIS
     Dosage: 2 DF (100/125MG EACH), BID WITH HIGH FAT FOOD
     Route: 048
     Dates: start: 20161203
  15. LEXAPRO [Interacting]
     Active Substance: ESCITALOPRAM OXALATE
     Indication: DEPRESSION
     Dosage: 5 MG, DAILY
     Route: 048
  16. ACTIGALL [Concomitant]
     Active Substance: URSODIOL
     Dosage: 1 DF, BID
     Route: 048
  17. MEPHYTON [Concomitant]
     Active Substance: PHYTONADIONE
     Dosage: 0.5 MG, QD
     Route: 048
  18. COLACE [Concomitant]
     Active Substance: DOCUSATE SODIUM
     Dosage: 1 DF, QD
     Route: 048
  19. PERIACTIN [Concomitant]
     Active Substance: CYPROHEPTADINE HYDROCHLORIDE
     Dosage: 1 DF, BID
     Route: 048
  20. PROAIR HFA [Concomitant]
     Active Substance: ALBUTEROL SULFATE
     Indication: DYSPNOEA
     Dosage: 2 DF, QID, PRN
     Route: 055
  21. HUMULIN R [Concomitant]
     Active Substance: INSULIN HUMAN
     Route: 058
  22. FLONASE [Concomitant]
     Active Substance: FLUTICASONE PROPIONATE
     Dosage: 2 SPRAYS IN EACH NOSE, QD
     Route: 045
  23. COMPLETE MULTI VIT [Concomitant]
     Dosage: 2 DF, QD
     Route: 048
  24. ZYRTEC [Concomitant]
     Active Substance: CETIRIZINE HYDROCHLORIDE
     Dosage: 1 DF, BID
  25. MIRALAX [Concomitant]
     Active Substance: POLYETHYLENE GLYCOL 3350
     Dosage: MIX WITH 4-8 OZ OF FEEDS, WATER OR JUICE. TAKE 2 CAPFULS WITH OVERNIGHT FEEDS + 1 CAPFUL IN MORNING.
  26. PULMOZYME [Concomitant]
     Active Substance: DORNASE ALFA
     Dosage: 2.5 ML, QD
     Route: 055
  27. REMERON [Interacting]
     Active Substance: MIRTAZAPINE
     Indication: DEPRESSION
     Dosage: 7.5MG DAILY
     Route: 048
  28. PROVENTIL [Concomitant]
     Active Substance: ALBUTEROL
     Dosage: 2.5 MG, BID. MAY INCREASE TO TID WITH ILLNESS
     Route: 055
  29. OCEAN SALINE NASAL SPRAY [Concomitant]
     Active Substance: SODIUM CHLORIDE
     Dosage: 2 SPRAYS BY NOSTRILS, BID. USE PRIOR TO TREATMENT AND AS NEEDED
     Route: 045

REACTIONS (3)
  - Drug interaction [Recovering/Resolving]
  - Pulmonary function test abnormal [Recovered/Resolved]
  - Depression [Recovering/Resolving]

NARRATIVE: CASE EVENT DATE: 201612
